FAERS Safety Report 11122095 (Version 1)
Quarter: 2015Q2

REPORT INFORMATION
  Report Type: Spontaneous
  Country: RU (occurrence: RU)
  Receive Date: 20150519
  Receipt Date: 20150519
  Transmission Date: 20150821
  Serious: Yes (Death, Life-Threatening, Other)
  Sender: FDA-Public Use
  Company Number: RU-ASTRAZENECA-2015SE42594

PATIENT
  Age: 33 Year
  Sex: Male
  Weight: 70 kg

DRUGS (2)
  1. NAROPIN [Suspect]
     Active Substance: ROPIVACAINE HYDROCHLORIDE
     Indication: LOCAL ANAESTHESIA
     Dosage: 7.5 MG/ML, 30 ML ONCE
     Route: 065
     Dates: start: 20150424
  2. NAROPIN [Suspect]
     Active Substance: ROPIVACAINE HYDROCHLORIDE
     Indication: LOCAL ANAESTHESIA
     Dosage: 7.5 MG/ML, 30 ML ONCE
     Route: 065
     Dates: start: 20150506

REACTIONS (3)
  - Brain oedema [Fatal]
  - Cardiac arrest [Unknown]
  - Coma [Fatal]

NARRATIVE: CASE EVENT DATE: 20150506
